FAERS Safety Report 25139883 (Version 1)
Quarter: 2025Q1

REPORT INFORMATION
  Report Type: Spontaneous
  Country: US (occurrence: US)
  Receive Date: 20250331
  Receipt Date: 20250331
  Transmission Date: 20250408
  Serious: Yes (Hospitalization)
  Sender: GILEAD
  Company Number: US-GILEAD-2025-0708844

PATIENT
  Sex: Male

DRUGS (13)
  1. EPCLUSA [Suspect]
     Active Substance: SOFOSBUVIR\VELPATASVIR
     Indication: Chronic hepatitis C
     Dosage: 1 DOSAGE FORM, QD
     Route: 048
  2. FLEET ENEMA [Concomitant]
     Active Substance: SODIUM PHOSPHATE, DIBASIC\SODIUM PHOSPHATE, MONOBASIC
  3. POLYETHYLENE GLYCOLS [Concomitant]
     Active Substance: POLYETHYLENE GLYCOLS
  4. DEPAKOTE [Concomitant]
     Active Substance: DIVALPROEX SODIUM
  5. ATIVAN [Concomitant]
     Active Substance: LORAZEPAM
  6. FERROUS SULFATE [Concomitant]
     Active Substance: FERROUS SULFATE
  7. ELIQUIS [Concomitant]
     Active Substance: APIXABAN
  8. CARVEDILOL [Concomitant]
     Active Substance: CARVEDILOL
  9. VITAMINS NOS [Concomitant]
     Active Substance: VITAMINS
  10. GABAPENTIN [Concomitant]
     Active Substance: GABAPENTIN
  11. FOLIC ACID [Concomitant]
     Active Substance: FOLIC ACID
  12. ACETAMINOPHEN [Concomitant]
     Active Substance: ACETAMINOPHEN
  13. RISPERIDONE [Concomitant]
     Active Substance: RISPERIDONE

REACTIONS (1)
  - Mental disorder [Unknown]
